FAERS Safety Report 16357571 (Version 1)
Quarter: 2019Q2

REPORT INFORMATION
  Report Type: Spontaneous
  Country: FR (occurrence: FR)
  Receive Date: 20190527
  Receipt Date: 20190527
  Transmission Date: 20190711
  Serious: Yes (Hospitalization)
  Sender: FDA-Public Use
  Company Number: FR-ACCORD-129271

PATIENT
  Age: 58 Year
  Sex: Female

DRUGS (3)
  1. EMEND [Concomitant]
     Active Substance: APREPITANT
     Route: 042
  2. FLUOROURACIL. [Suspect]
     Active Substance: FLUOROURACIL
     Indication: CHEMOTHERAPY
     Dosage: 2000 MG OVER 2 DAYS
     Route: 042
     Dates: start: 20190319, end: 20190321
  3. DOCETAXEL. [Concomitant]
     Active Substance: DOCETAXEL
     Route: 042
     Dates: start: 20190319

REACTIONS (2)
  - Erythema [Recovered/Resolved]
  - Face oedema [Recovered/Resolved]

NARRATIVE: CASE EVENT DATE: 20190321
